FAERS Safety Report 4928427-X (Version None)
Quarter: 2006Q1

REPORT INFORMATION
  Report Type: 
  Country: None (occurrence: None)
  Receive Date: 20060228
  Receipt Date: 20060221
  Transmission Date: 20060701
  Serious: Yes (Other)
  Sender: FDA-Public Use
  Company Number: US-MERCK-0602USA05400

PATIENT
  Sex: Male
  Weight: 116 kg

DRUGS (8)
  1. VIOXX [Suspect]
     Indication: PAIN
     Route: 048
     Dates: start: 19990831, end: 20030909
  2. VIOXX [Suspect]
     Route: 048
     Dates: start: 19991215
  3. VIOXX [Suspect]
     Route: 048
     Dates: start: 19990729
  4. VIOXX [Suspect]
     Route: 048
     Dates: start: 19990831, end: 20030909
  5. VIOXX [Suspect]
     Indication: INFLAMMATION
     Route: 048
     Dates: start: 19990831, end: 20030909
  6. VIOXX [Suspect]
     Route: 048
     Dates: start: 19991215
  7. VIOXX [Suspect]
     Route: 048
     Dates: start: 19990729
  8. VIOXX [Suspect]
     Route: 048
     Dates: start: 19990831, end: 20030909

REACTIONS (1)
  - MYOCARDIAL INFARCTION [None]
